FAERS Safety Report 4923077-3 (Version None)
Quarter: 2006Q1

REPORT INFORMATION
  Report Type: 
  Country: None (occurrence: None)
  Receive Date: 20060113
  Receipt Date: 20050531
  Transmission Date: 20060701
  Serious: Yes (Other)
  Sender: FDA-Public Use
  Company Number: HQWYE774503AUG04

PATIENT
  Age: 60 Year
  Sex: Female
  Weight: 77.18 kg

DRUGS (9)
  1. PREMPRO [Suspect]
     Indication: HOT FLUSH
     Dates: start: 19950101
  2. PREMPRO [Suspect]
     Indication: OSTEOPOROSIS PROPHYLAXIS
     Dates: start: 19950101
  3. CYCRIN [Suspect]
  4. PREMARIN [Suspect]
     Dates: start: 19910101, end: 19950101
  5. PREMARIN [Suspect]
     Dates: start: 19990101
  6. PREMARIN [Suspect]
     Dates: start: 20000101
  7. , [Concomitant]
  8. PROVERA [Suspect]
     Dates: start: 19910101, end: 19950101
  9. VERAPAMIL [Concomitant]

REACTIONS (1)
  - BREAST CANCER [None]
